FAERS Safety Report 16881550 (Version 1)
Quarter: 2019Q4

REPORT INFORMATION
  Report Type: Spontaneous
  Country: CH (occurrence: CH)
  Receive Date: 20191003
  Receipt Date: 20191003
  Transmission Date: 20200122
  Serious: Yes (Other)
  Sender: FDA-Public Use
  Company Number: CH-009507513-1910CHE000248

PATIENT
  Age: 73 Year
  Sex: Male

DRUGS (1)
  1. KEYTRUDA [Suspect]
     Active Substance: PEMBROLIZUMAB
     Indication: TRANSITIONAL CELL CARCINOMA
     Dosage: AS SECOND LINE (2L) TREATMENT

REACTIONS (7)
  - Antineutrophil cytoplasmic antibody positive [Unknown]
  - Drug ineffective [Unknown]
  - Sudden hearing loss [Unknown]
  - Therapy non-responder [Unknown]
  - Arthralgia [Unknown]
  - Vasculitis [Unknown]
  - Glomerulonephritis [Unknown]
